FAERS Safety Report 11749524 (Version 1)
Quarter: 2015Q4

REPORT INFORMATION
  Report Type: Spontaneous
  Country: US (occurrence: None)
  Receive Date: 20151117
  Receipt Date: 20151117
  Transmission Date: 20160304
  Serious: No
  Sender: FDA-Public Use
  Company Number: None

PATIENT
  Age: 63 Year
  Sex: Female
  Weight: 83.92 kg

DRUGS (8)
  1. NASONEX [Suspect]
     Active Substance: MOMETASONE FUROATE
     Indication: MULTIPLE ALLERGIES
     Dosage: 2 SPRAYS IN EACH NOSTRIL DAILY
     Route: 045
  2. LISINOPRIL. [Concomitant]
     Active Substance: LISINOPRIL
  3. AMLODIPINE [Concomitant]
     Active Substance: AMLODIPINE BESYLATE
  4. NEURONTIN [Concomitant]
     Active Substance: GABAPENTIN
  5. ONE A DAY VITAMINS [Concomitant]
  6. CYMBALTA [Concomitant]
     Active Substance: DULOXETINE HYDROCHLORIDE
  7. CRESTOR [Concomitant]
     Active Substance: ROSUVASTATIN CALCIUM
  8. COQ10 [Concomitant]
     Active Substance: UBIDECARENONE

REACTIONS (4)
  - Abnormal dreams [None]
  - Sleep talking [None]
  - Nightmare [None]
  - Sleep disorder [None]

NARRATIVE: CASE EVENT DATE: 20151115
